FAERS Safety Report 4590287-7 (Version None)
Quarter: 2005Q1

REPORT INFORMATION
  Report Type: 
  Country: None (occurrence: None)
  Receive Date: 20050217
  Receipt Date: 20050208
  Transmission Date: 20050727
  Serious: Yes (Hospitalization)
  Sender: FDA-Public Use
  Company Number: A01200500686

PATIENT
  Sex: Male

DRUGS (1)
  1. ELIGARD [Suspect]
     Indication: PROSTATE CANCER
     Dosage: 22.5MG Q3M, SUBCUTANEOUS
     Route: 058

REACTIONS (2)
  - FALL [None]
  - FEMORAL NECK FRACTURE [None]
